FAERS Safety Report 5365741-0 (Version None)
Quarter: 2007Q2

REPORT INFORMATION
  Report Type: 
  Country: None (occurrence: None)
  Receive Date: 20070621
  Receipt Date: 20070613
  Transmission Date: 20071010
  Serious: Yes (Hospitalization)
  Sender: FDA-Public Use
  Company Number: NL-BOEHRINGER INGELHEIM PHARMACEUTICALS, INC.-2007-NL-00271NL

PATIENT
  Sex: Male

DRUGS (7)
  1. VIRAMUNE [Suspect]
  2. ATAZANAVIR SULFATE [Concomitant]
  3. MARCUMAR [Concomitant]
  4. NORVIR [Concomitant]
  5. TRUVADA [Concomitant]
  6. SELENIUM SULFIDE [Concomitant]
  7. ACETYLCYSTEINE [Concomitant]

REACTIONS (2)
  - BACTERIAL INFECTION [None]
  - ENDOCARDITIS [None]
